FAERS Safety Report 25229759 (Version 2)
Quarter: 2025Q4

REPORT INFORMATION
  Report Type: Spontaneous
  Country: CN (occurrence: CN)
  Receive Date: 20250423
  Receipt Date: 20251113
  Transmission Date: 20260117
  Serious: Yes (Hospitalization, Other)
  Sender: PFIZER
  Company Number: CN-PFIZER INC-PV202500046714

PATIENT
  Age: 13 Year
  Sex: Male

DRUGS (1)
  1. BENEFIX [Suspect]
     Active Substance: COAGULATION FACTOR IX RECOMBINANT HUMAN\ISOPROPYL ALCOHOL
     Indication: Prophylaxis
     Dosage: 1000 IU
     Route: 040
     Dates: start: 20250416, end: 2025

REACTIONS (7)
  - Drug hypersensitivity [Recovering/Resolving]
  - Factor IX inhibition [Not Recovered/Not Resolved]
  - Dyspnoea [Recovering/Resolving]
  - Eye swelling [Recovering/Resolving]
  - Erythema [Recovering/Resolving]
  - Injection site erythema [Recovering/Resolving]
  - Vomiting [Recovered/Resolved]

NARRATIVE: CASE EVENT DATE: 20250101
